FAERS Safety Report 13362298 (Version 1)
Quarter: 2017Q1

REPORT INFORMATION
  Report Type: Spontaneous
  Country: US (occurrence: US)
  Receive Date: 20170322
  Receipt Date: 20170322
  Transmission Date: 20170429
  Serious: Yes (Other)
  Sender: FDA-Public Use
  Company Number: None

PATIENT
  Age: 69 Year
  Sex: Female
  Weight: 67.5 kg

DRUGS (6)
  1. AMLODIPINE [Concomitant]
     Active Substance: AMLODIPINE BESYLATE
  2. BABY ASPIRIN [Concomitant]
     Active Substance: ASPIRIN
  3. CAPZASIN HP ARTHRITIS PAIN RELIEF [Suspect]
     Active Substance: CAPSAICIN
     Indication: ARTHRITIS
     Dosage: 1 DROP AT BEDTIME TOPICAL
     Route: 061
     Dates: start: 20170321, end: 20170322
  4. VITAMIN D3 [Concomitant]
     Active Substance: CHOLECALCIFEROL
  5. STATINS [Concomitant]
     Active Substance: UNSPECIFIED INGREDIENT
  6. MEGA RED [Concomitant]

REACTIONS (3)
  - Sleep disorder [None]
  - Application site warmth [None]
  - Skin burning sensation [None]

NARRATIVE: CASE EVENT DATE: 20170321
